FAERS Safety Report 12909099 (Version 1)
Quarter: 2016Q4

REPORT INFORMATION
  Report Type: Spontaneous
  Country: US (occurrence: US)
  Receive Date: 20161103
  Receipt Date: 20161103
  Transmission Date: 20170207
  Serious: No
  Sender: FDA-Public Use
  Company Number: US-JAZZ-2016-US-016930

PATIENT
  Age: 37 Year
  Sex: Female

DRUGS (11)
  1. XYREM [Suspect]
     Active Substance: SODIUM OXYBATE
     Indication: NARCOLEPSY
     Dosage: 4.5 G, BID
     Route: 048
     Dates: start: 201607
  2. VITAMIN D3 [Concomitant]
     Active Substance: CHOLECALCIFEROL
  3. EFFEXOR [Concomitant]
     Active Substance: VENLAFAXINE HYDROCHLORIDE
  4. NUVIGIL [Concomitant]
     Active Substance: ARMODAFINIL
  5. ADDERALL [Concomitant]
     Active Substance: AMPHETAMINE ASPARTATE\AMPHETAMINE SULFATE\DEXTROAMPHETAMINE SACCHARATE\DEXTROAMPHETAMINE SULFATE
  6. MELOXICAM. [Concomitant]
     Active Substance: MELOXICAM
  7. MULTIVITAMINS [Concomitant]
     Active Substance: VITAMINS
  8. KETOCONAZOLE. [Concomitant]
     Active Substance: KETOCONAZOLE
  9. METROGEL [Concomitant]
     Active Substance: METRONIDAZOLE
  10. OMEGA 3 [Concomitant]
     Active Substance: OMEGA-3 FATTY ACIDS
  11. CYMBALTA [Concomitant]
     Active Substance: DULOXETINE HYDROCHLORIDE

REACTIONS (1)
  - Dizziness [Not Recovered/Not Resolved]

NARRATIVE: CASE EVENT DATE: 201608
